FAERS Safety Report 13896296 (Version 1)
Quarter: 2017Q3

REPORT INFORMATION
  Report Type: Spontaneous
  Country: US (occurrence: None)
  Receive Date: 20170814
  Receipt Date: 20170814
  Transmission Date: 20171127
  Serious: Yes (Disabling)
  Sender: FDA-Public Use
  Company Number: None

PATIENT
  Age: 86 Year
  Sex: Male
  Weight: 99.79 kg

DRUGS (7)
  1. METOPROLOL TARTRATE. [Concomitant]
     Active Substance: METOPROLOL TARTRATE
  2. MAGNESIUM [Concomitant]
     Active Substance: MAGNESIUM
  3. OMEGA 3 [Concomitant]
     Active Substance: OMEGA-3 FATTY ACIDS
  4. BICALUTAMIDE 50MG TAB. ACCO (SUB FOR CASODEX) [Suspect]
     Active Substance: BICALUTAMIDE
     Indication: PROSTATE CANCER
     Dosage: 1 PILL 1 TIME DAILY MOUTH TAKEN WITH WATER
     Route: 048
     Dates: start: 20170628, end: 20170718
  5. MULTIPLE VIT [Concomitant]
  6. WARFARIN [Concomitant]
     Active Substance: WARFARIN
  7. ASPIRIN. [Concomitant]
     Active Substance: ASPIRIN

REACTIONS (6)
  - Muscular weakness [None]
  - Tongue disorder [None]
  - Asthenia [None]
  - Confusional state [None]
  - Hallucination [None]
  - Delirium [None]

NARRATIVE: CASE EVENT DATE: 20170717
